FAERS Safety Report 20254708 (Version 2)
Quarter: 2022Q1

REPORT INFORMATION
  Report Type: Spontaneous
  Country: PT (occurrence: PT)
  Receive Date: 20211230
  Receipt Date: 20220203
  Transmission Date: 20220423
  Serious: Yes (Death, Other)
  Sender: FDA-Public Use
  Company Number: PT-INTERCEPT-PM2021003532

PATIENT
  Age: 68 Year
  Sex: Female

DRUGS (2)
  1. OCALIVA [Suspect]
     Active Substance: OBETICHOLIC ACID
     Indication: Primary biliary cholangitis
     Dosage: 5 MILLIGRAM, UNK
     Dates: start: 201811
  2. OCALIVA [Suspect]
     Active Substance: OBETICHOLIC ACID
     Dosage: 5 MILLIGRAM, 2X/WK
     Route: 048

REACTIONS (2)
  - Breast cancer metastatic [Fatal]
  - Hepatic cirrhosis [Unknown]

NARRATIVE: CASE EVENT DATE: 20211201
